FAERS Safety Report 4280033-9 (Version None)
Quarter: 2004Q1

REPORT INFORMATION
  Report Type: 
  Country: None (occurrence: None)
  Receive Date: 20040126
  Receipt Date: 20040112
  Transmission Date: 20041129
  Serious: Yes (Disabling)
  Sender: FDA-Public Use
  Company Number: 2003120711

PATIENT
  Age: 37 Year
  Sex: Female
  Weight: 55 kg

DRUGS (2)
  1. ZELDOX (CAPSULES) (ZIPRASIDONE) [Suspect]
     Indication: PSYCHOTIC DISORDER
     Dosage: 80 MG (DAILY), ORAL
     Route: 048
     Dates: start: 20031029, end: 20031112
  2. PERPHENAZINE [Suspect]
     Indication: PSYCHOTIC DISORDER
     Dosage: 8 MG (BID), ORAL
     Route: 048

REACTIONS (6)
  - CHEST PAIN [None]
  - DRUG INTERACTION [None]
  - JOINT STIFFNESS [None]
  - MALAISE [None]
  - MUSCLE RIGIDITY [None]
  - MUSCULOSKELETAL STIFFNESS [None]
